FAERS Safety Report 8519688-9 (Version None)
Quarter: 2012Q3

REPORT INFORMATION
  Report Type: 
  Country: None (occurrence: None)
  Receive Date: 20120719
  Receipt Date: 20120712
  Transmission Date: 20120928
  Serious: Yes (Disabling)
  Sender: FDA-Public Use
  Company Number: CH-009507513-1207CHE005453

PATIENT

DRUGS (2)
  1. PROPECIA [Suspect]
     Indication: ANDROGENETIC ALOPECIA
     Dosage: 1 MG, QD
     Route: 048
     Dates: start: 20110801, end: 20110901
  2. PROPECIA [Suspect]
     Dosage: 1 MG, QID
     Route: 048
     Dates: start: 20111101, end: 20120107

REACTIONS (5)
  - SEMEN ANALYSIS ABNORMAL [None]
  - ERECTILE DYSFUNCTION [None]
  - TESTICULAR PAIN [None]
  - LIBIDO DECREASED [None]
  - ANXIETY [None]
